FAERS Safety Report 9286060 (Version 1)
Quarter: 2013Q2

REPORT INFORMATION
  Report Type: Spontaneous
  Country: US (occurrence: US)
  Receive Date: 20130513
  Receipt Date: 20130513
  Transmission Date: 20140414
  Serious: Yes (Other)
  Sender: FDA-Public Use
  Company Number: US-ASTRAZENECA-2013SE31176

PATIENT
  Age: 61 Year
  Sex: Male
  Weight: 79.4 kg

DRUGS (3)
  1. CRESTOR [Suspect]
     Indication: BLOOD CHOLESTEROL
     Route: 048
     Dates: start: 20120517, end: 20120610
  2. METHAZOMAL [Concomitant]
     Indication: THYROID DISORDER
  3. TRAZADONE [Concomitant]
     Indication: ANXIETY

REACTIONS (3)
  - Ear disorder [Unknown]
  - Tinnitus [Not Recovered/Not Resolved]
  - Hearing impaired [Not Recovered/Not Resolved]
